FAERS Safety Report 5771578-0 (Version None)
Quarter: 2008Q2

REPORT INFORMATION
  Report Type: 
  Country: None (occurrence: None)
  Receive Date: 20080613
  Receipt Date: 20080603
  Transmission Date: 20081010
  Serious: Yes (Hospitalization)
  Sender: FDA-Public Use
  Company Number: FR-JNJFOC-20080602785

PATIENT
  Sex: Female

DRUGS (10)
  1. ULTRACET [Suspect]
     Indication: PAIN
     Route: 048
  2. VERAPAMIL [Suspect]
     Indication: ATRIAL FIBRILLATION
     Route: 048
  3. PREVISCAN [Concomitant]
  4. STILNOX [Concomitant]
  5. LYSANXIA [Concomitant]
  6. LUMIGAN [Concomitant]
  7. DETENSIEL [Concomitant]
  8. DIGOXIN [Concomitant]
  9. LEVOTHYROXINE SODIUM [Concomitant]
  10. TAREG [Concomitant]

REACTIONS (10)
  - AORTIC VALVE INCOMPETENCE [None]
  - ATRIAL FIBRILLATION [None]
  - BLOOD POTASSIUM INCREASED [None]
  - BLOOD PRESSURE SYSTOLIC INCREASED [None]
  - DIZZINESS [None]
  - DYSPNOEA [None]
  - FATIGUE [None]
  - HOT FLUSH [None]
  - INTERNATIONAL NORMALISED RATIO INCREASED [None]
  - MALAISE [None]
